FAERS Safety Report 20390895 (Version 3)
Quarter: 2022Q1

REPORT INFORMATION
  Report Type: Spontaneous
  Country: JP (occurrence: None)
  Receive Date: 20220128
  Receipt Date: 20220214
  Transmission Date: 20220423
  Serious: Yes (Other)
  Sender: FDA-Public Use
  Company Number: 2022A035854

PATIENT
  Age: 60 Year
  Sex: Male

DRUGS (2)
  1. DAPAGLIFLOZIN [Interacting]
     Active Substance: DAPAGLIFLOZIN
     Dosage: DOSE UNKNOWN
     Route: 048
  2. RYBELSUS [Interacting]
     Active Substance: SEMAGLUTIDE
     Dosage: DOSE UNKNOWN
     Route: 048

REACTIONS (2)
  - Drug interaction [Unknown]
  - Euglycaemic diabetic ketoacidosis [Recovering/Resolving]
